FAERS Safety Report 22324381 (Version 2)
Quarter: 2023Q2

REPORT INFORMATION
  Report Type: Spontaneous
  Country: US (occurrence: US)
  Receive Date: 20230516
  Receipt Date: 20230523
  Transmission Date: 20230721
  Serious: No
  Sender: FDA-Public Use
  Company Number: nICSR050

PATIENT
  Age: 66 Year
  Sex: Female
  Weight: 58.97 kg

DRUGS (4)
  1. ASCLERA [Suspect]
     Active Substance: POLIDOCANOL
     Indication: Spider vein
     Dates: start: 20221130, end: 20221130
  2. ASCLERA [Suspect]
     Active Substance: POLIDOCANOL
     Indication: Varicose vein
     Dates: start: 20221130, end: 20221130
  3. ARNICA MONTANA FLOWER [Concomitant]
     Active Substance: ARNICA MONTANA FLOWER
     Indication: Contusion
     Route: 048
  4. broadband Light [Concomitant]
     Indication: Contusion

REACTIONS (1)
  - Injection site bruising [Unknown]
